FAERS Safety Report 17301376 (Version 1)
Quarter: 2020Q1

REPORT INFORMATION
  Report Type: Spontaneous
  Country: US (occurrence: US)
  Receive Date: 20200121
  Receipt Date: 20200121
  Transmission Date: 20200409
  Serious: Yes (Hospitalization, Other)
  Sender: FDA-Public Use
  Company Number: None

PATIENT
  Age: 33 Year
  Sex: Female
  Weight: 70.65 kg

DRUGS (1)
  1. RSO CBD 2:1 [Suspect]
     Active Substance: CANNABIDIOL\CANNABIS SATIVA SEED OIL
     Indication: RHEUMATOID ARTHRITIS
     Dosage: ?          QUANTITY:2 DROP(S);?
     Route: 060
     Dates: start: 20200119, end: 20200119

REACTIONS (3)
  - Headache [None]
  - Seizure [None]
  - Hallucination [None]

NARRATIVE: CASE EVENT DATE: 20200119
